FAERS Safety Report 21691977 (Version 1)
Quarter: 2022Q4

REPORT INFORMATION
  Report Type: Report from Study
  Country: US (occurrence: US)
  Receive Date: 20221207
  Receipt Date: 20221207
  Transmission Date: 20230113
  Serious: Yes (Other)
  Sender: FDA-Public Use
  Company Number: US-ABBVIE-4224647

PATIENT
  Sex: Female

DRUGS (1)
  1. HUMIRA [Suspect]
     Active Substance: ADALIMUMAB
     Indication: Rheumatoid arthritis
     Dosage: CITRATE FREE
     Route: 058

REACTIONS (9)
  - Foot operation [Recovering/Resolving]
  - Arthropathy [Unknown]
  - Pericardial effusion [Unknown]
  - Hypotension [Unknown]
  - Arthritis [Unknown]
  - Limb operation [Recovering/Resolving]
  - Plantar fasciitis [Not Recovered/Not Resolved]
  - Fluid retention [Recovered/Resolved]
  - Gait disturbance [Unknown]
